FAERS Safety Report 26134508 (Version 1)
Quarter: 2025Q4

REPORT INFORMATION
  Report Type: Spontaneous
  Country: US (occurrence: US)
  Receive Date: 20251209
  Receipt Date: 20251209
  Transmission Date: 20260117
  Serious: Yes (Other)
  Sender: GLAXOSMITHKLINE
  Company Number: US-GLAXOSMITHKLINE INC-US2025154822

PATIENT
  Sex: Female

DRUGS (1)
  1. TRELEGY ELLIPTA [Suspect]
     Active Substance: FLUTICASONE FUROATE\UMECLIDINIUM BROMIDE\VILANTEROL TRIFENATATE
     Indication: Pneumonectomy
     Dosage: UNK, QD, 200/62.5/25MCG

REACTIONS (4)
  - Hypoxia [Unknown]
  - Ankle fracture [Unknown]
  - Lung disorder [Unknown]
  - Off label use [Unknown]
